FAERS Safety Report 6862793-3 (Version None)
Quarter: 2010Q3

REPORT INFORMATION
  Report Type: 
  Country: None (occurrence: None)
  Receive Date: 20100721
  Receipt Date: 20100712
  Transmission Date: 20110219
  Serious: Yes (Other)
  Sender: FDA-Public Use
  Company Number: BR-AMGEN-QUU424784

PATIENT
  Sex: Female

DRUGS (6)
  1. GRANULOKINE [Suspect]
     Indication: PRODUCT USED FOR UNKNOWN INDICATION
     Dates: start: 20091101
  2. PEGASYS [Suspect]
     Route: 042
     Dates: start: 20091101
  3. AMOXICILLIN [Suspect]
     Route: 048
     Dates: start: 20100601, end: 20100601
  4. RIBAVIRIN [Concomitant]
     Dates: start: 20091120
  5. PANTOPRAZOLE [Concomitant]
     Dates: start: 20100601
  6. LOSARTAN POTASSIUM [Concomitant]
     Dates: start: 20100101

REACTIONS (7)
  - BLOOD URIC ACID INCREASED [None]
  - DIABETES MELLITUS [None]
  - DRUG INEFFECTIVE [None]
  - DYSPNOEA [None]
  - FATIGUE [None]
  - MALAISE [None]
  - NEUTROPHIL COUNT DECREASED [None]
